FAERS Safety Report 18027201 (Version 2)
Quarter: 2020Q3

REPORT INFORMATION
  Report Type: Spontaneous
  Country: JP (occurrence: JP)
  Receive Date: 20200716
  Receipt Date: 20200725
  Transmission Date: 20201103
  Serious: Yes (Hospitalization)
  Sender: FDA-Public Use
  Company Number: JP-AMGEN-JPNSP2020113847

PATIENT
  Age: 8 Decade

DRUGS (1)
  1. VECTIBIX [Suspect]
     Active Substance: PANITUMUMAB
     Indication: COLON CANCER
     Dosage: UNK
     Route: 042

REACTIONS (3)
  - Dermatitis allergic [Recovered/Resolved]
  - Allergic respiratory symptom [Recovered/Resolved]
  - Allergic oedema [Recovered/Resolved]
